FAERS Safety Report 7375829-0 (Version None)
Quarter: 2011Q1

REPORT INFORMATION
  Report Type: 
  Country: None (occurrence: None)
  Receive Date: 20110325
  Receipt Date: 20110316
  Transmission Date: 20110831
  Serious: Yes (Death)
  Sender: FDA-Public Use
  Company Number: A0901569A

PATIENT
  Age: 68 Year
  Sex: Female
  Weight: 65.9 kg

DRUGS (10)
  1. XELODA [Suspect]
     Indication: BREAST CANCER
     Dosage: 2000MG CYCLIC
     Route: 048
     Dates: start: 20100401, end: 20100701
  2. MAGNESIUM OXIDE [Concomitant]
     Dosage: 400MG PER DAY
     Route: 048
  3. PYRIDOXINE HCL [Concomitant]
     Dosage: 100MG TWICE PER DAY
     Route: 048
  4. VITAMIN B-12 [Concomitant]
     Dosage: 500MCG PER DAY
     Route: 048
  5. TYKERB [Suspect]
     Dosage: 1250MG IN THE MORNING
     Route: 065
     Dates: start: 20100626, end: 20100808
  6. VITAMIN D [Concomitant]
     Indication: VITAMIN SUPPLEMENTATION
     Dosage: 2000IU PER DAY
     Route: 048
  7. SYNTHROID [Concomitant]
     Indication: HYPOTHYROIDISM
     Dosage: 125MCG IN THE MORNING
  8. ZOMETA [Concomitant]
     Route: 042
  9. PRILOSEC [Concomitant]
     Dosage: 20MG PER DAY
     Route: 048
  10. MULTI-VITAMIN [Concomitant]
     Indication: VITAMIN SUPPLEMENTATION
     Dosage: 1TAB PER DAY
     Route: 048

REACTIONS (20)
  - PNEUMONITIS [None]
  - METASTASES TO BONE [None]
  - CHEST X-RAY ABNORMAL [None]
  - DYSPNOEA [None]
  - METASTASES TO LIVER [None]
  - ASCITES [None]
  - ASTHENIA [None]
  - PLEURAL EFFUSION [None]
  - CARCINOEMBRYONIC ANTIGEN INCREASED [None]
  - CARBOHYDRATE ANTIGEN 27.29 INCREASED [None]
  - OESOPHAGEAL DISORDER [None]
  - OESOPHAGITIS [None]
  - BREAST CANCER METASTATIC [None]
  - PULMONARY OEDEMA [None]
  - TREATMENT FAILURE [None]
  - DYSPNOEA EXERTIONAL [None]
  - LIVER FUNCTION TEST ABNORMAL [None]
  - PRODUCTIVE COUGH [None]
  - CARBOHYDRATE ANTIGEN 15-3 INCREASED [None]
  - LIVER DISORDER [None]
